FAERS Safety Report 13039333 (Version 1)
Quarter: 2016Q4

REPORT INFORMATION
  Report Type: Spontaneous
  Country: US (occurrence: US)
  Receive Date: 20161219
  Receipt Date: 20161219
  Transmission Date: 20170207
  Serious: No
  Sender: FDA-Public Use
  Company Number: US-BAYER-2016-236445

PATIENT
  Age: 7 Year
  Sex: Male

DRUGS (1)
  1. MIRALAX [Suspect]
     Active Substance: POLYETHYLENE GLYCOL 3350
     Indication: CONSTIPATION
     Dosage: UNK UNK, QD
     Route: 048
     Dates: start: 20161210, end: 20161211

REACTIONS (3)
  - Wrong technique in product usage process [Recovered/Resolved]
  - Drug administered to patient of inappropriate age [Unknown]
  - Bowel movement irregularity [Unknown]

NARRATIVE: CASE EVENT DATE: 20161210
